FAERS Safety Report 8902565 (Version 1)
Quarter: 2012Q4

REPORT INFORMATION
  Report Type: 
  Country: US (occurrence: US)
  Receive Date: 20121112
  Receipt Date: 20121112
  Transmission Date: 20130627
  Serious: No
  Sender: FDA-Public Use
  Company Number: US-ASTRAZENECA-2012SE82510

PATIENT
  Age: 39 Year
  Sex: Female

DRUGS (2)
  1. SEROQUEL [Suspect]
     Indication: BIPOLAR II DISORDER
     Route: 048
  2. CYMBALTA [Concomitant]
     Indication: FIBROMYALGIA

REACTIONS (3)
  - Insomnia [Unknown]
  - Social phobia [Unknown]
  - Drug dose omission [Unknown]
